FAERS Safety Report 5464650-6 (Version None)
Quarter: 2007Q3

REPORT INFORMATION
  Report Type: 
  Country: None (occurrence: None)
  Receive Date: 20070921
  Receipt Date: 20070917
  Transmission Date: 20080115
  Serious: Yes (Hospitalization)
  Sender: FDA-Public Use
  Company Number: US-MERCK-0709USA01942

PATIENT
  Age: 50 Year
  Sex: Female

DRUGS (2)
  1. JANUVIA [Suspect]
     Indication: TYPE 2 DIABETES MELLITUS
     Route: 048
  2. JANUVIA [Suspect]
     Route: 048

REACTIONS (2)
  - VOMITING [None]
  - WHITE BLOOD CELL COUNT INCREASED [None]
